FAERS Safety Report 8084684-5 (Version None)
Quarter: 2012Q1

REPORT INFORMATION
  Report Type: 
  Country: None (occurrence: None)
  Receive Date: 20120128
  Receipt Date: 20110311
  Transmission Date: 20120608
  Serious: No
  Sender: FDA-Public Use
  Company Number: US-ABBOTT-11P-163-0710962-00

PATIENT
  Age: 35 Year
  Sex: Female

DRUGS (30)
  1. HUMIRA [Suspect]
     Indication: BEHCET'S SYNDROME
     Dates: start: 20101101
  2. ONDANSETRON HCL [Concomitant]
     Indication: NAUSEA
     Dosage: 2 TABS
  3. GABAPENTIN [Concomitant]
     Indication: PRODUCT USED FOR UNKNOWN INDICATION
     Dosage: 2 IN AM, 2 IN AFTERNOON, 3 AT BEDTIME
  4. LIDOCAINE [Concomitant]
     Indication: MOUTH ULCERATION
     Dosage: VISCOUS SOLUTION SWISH
  5. MAJIC MOUTHWASH-BENADRYL [Concomitant]
     Indication: PRODUCT USED FOR UNKNOWN INDICATION
  6. VITAMIN B-12 [Concomitant]
     Indication: PRODUCT USED FOR UNKNOWN INDICATION
     Dosage: BI-MONTHLY
  7. LOMOTIL [Concomitant]
     Indication: PRODUCT USED FOR UNKNOWN INDICATION
     Dosage: 0.25-MG-2.5MG 2 TABS AFTER LOOSE STOOL
  8. METHOTREXATE [Concomitant]
     Indication: PRODUCT USED FOR UNKNOWN INDICATION
  9. WELLBUTRIN [Concomitant]
     Indication: DEPRESSION
  10. PERCOCET-5 [Concomitant]
     Indication: PRODUCT USED FOR UNKNOWN INDICATION
     Dosage: 5/325 MG EVERY 6 HOURS AS NEEDED
  11. SPIRONOLACTONE [Concomitant]
     Indication: POLYCYSTIC OVARIES
  12. ARAVA [Concomitant]
     Indication: PRODUCT USED FOR UNKNOWN INDICATION
     Dosage: 10MG EVERYDAY OR 20MG EVERY OTHER DAY
  13. FERROUS SULFATE TAB [Concomitant]
     Indication: PRODUCT USED FOR UNKNOWN INDICATION
  14. DIAZIDE [Concomitant]
     Indication: PRODUCT USED FOR UNKNOWN INDICATION
  15. ALBUTEROL [Concomitant]
     Indication: PRODUCT USED FOR UNKNOWN INDICATION
  16. CARAFATE [Concomitant]
     Indication: PRODUCT USED FOR UNKNOWN INDICATION
  17. OPTIVE EYE GTTS [Concomitant]
     Indication: PRODUCT USED FOR UNKNOWN INDICATION
  18. EFFEXOR [Concomitant]
     Indication: DEPRESSION
  19. PREDNISONE TAB [Concomitant]
     Indication: PRODUCT USED FOR UNKNOWN INDICATION
  20. FROVA [Concomitant]
     Indication: MIGRAINE
  21. ALBUTEROL [Concomitant]
     Indication: PRODUCT USED FOR UNKNOWN INDICATION
     Dosage: 2.5/3ML
  22. FLEXERIL [Concomitant]
     Indication: MUSCLE SPASMS
  23. GLUCOPHAGE [Concomitant]
     Indication: POLYCYSTIC OVARIES
  24. TRAZODONE HCL [Concomitant]
     Indication: PRODUCT USED FOR UNKNOWN INDICATION
     Dosage: AT BEDTIME
  25. PROVERA [Concomitant]
     Indication: PRODUCT USED FOR UNKNOWN INDICATION
     Dosage: 12 DAYS PER MONTH
  26. LISINOPRIL [Concomitant]
     Indication: PRODUCT USED FOR UNKNOWN INDICATION
  27. AMBIEN [Concomitant]
     Indication: PRODUCT USED FOR UNKNOWN INDICATION
     Dosage: AT BEDTIME
  28. MYLANTA [Concomitant]
     Indication: PRODUCT USED FOR UNKNOWN INDICATION
  29. ZOLTAREN GEL [Concomitant]
     Indication: DERMATITIS
  30. ADVAIR DISKUS 100/50 [Concomitant]
     Indication: PRODUCT USED FOR UNKNOWN INDICATION
     Dosage: 250MG MCG-50 MCG POWDER 1 PUFF

REACTIONS (5)
  - SKIN MASS [None]
  - DRUG INEFFECTIVE [None]
  - GASTRIC ULCER [None]
  - BEHCET'S SYNDROME [None]
  - SKIN ULCER [None]
